FAERS Safety Report 9551580 (Version 1)
Quarter: 2013Q3

REPORT INFORMATION
  Report Type: Spontaneous
  Country: US (occurrence: None)
  Receive Date: 20130923
  Receipt Date: 20130923
  Transmission Date: 20140515
  Serious: Yes (Life-Threatening, Hospitalization)
  Sender: FDA-Public Use
  Company Number: None

PATIENT
  Age: 27 Year
  Sex: Male
  Weight: 51.8 kg

DRUGS (2)
  1. ALIMTA [Suspect]
     Indication: MESOTHELIOMA
     Route: 042
     Dates: start: 20130816
  2. CARBOPLATIN [Concomitant]

REACTIONS (6)
  - Pancytopenia [None]
  - Stomatitis [None]
  - Gingival bleeding [None]
  - Mouth haemorrhage [None]
  - Skin lesion [None]
  - Pyrexia [None]
